FAERS Safety Report 8905528 (Version 1)
Quarter: 2012Q4

REPORT INFORMATION
  Report Type: 
  Country: SE (occurrence: SE)
  Receive Date: 20121113
  Receipt Date: 20121113
  Transmission Date: 20130627
  Serious: Yes (Other)
  Sender: FDA-Public Use
  Company Number: SE-ASTRAZENECA-2012SE84529

PATIENT
  Age: 24941 Day
  Sex: Female

DRUGS (1)
  1. CARBOCAIN [Suspect]
     Route: 058
     Dates: start: 20120828, end: 20120828

REACTIONS (1)
  - Hypersensitivity [Recovered/Resolved]
